FAERS Safety Report 18626519 (Version 1)
Quarter: 2020Q4

REPORT INFORMATION
  Report Type: Spontaneous
  Country: GR (occurrence: GR)
  Receive Date: 20201216
  Receipt Date: 20201216
  Transmission Date: 20210114
  Serious: Yes (Other)
  Sender: FDA-Public Use
  Company Number: GR-NOVEN PHARMACEUTICALS, INC.-2020GR008347

PATIENT
  Sex: Female

DRUGS (1)
  1. ESTRADIOL/NORETHISTRONE ACETATE [Suspect]
     Active Substance: ESTRADIOL\NORETHINDRONE ACETATE
     Indication: THALASSAEMIA BETA
     Dosage: UNKNOWN
     Route: 065

REACTIONS (1)
  - Hepatocellular carcinoma [Unknown]
